FAERS Safety Report 19232753 (Version 1)
Quarter: 2021Q2

REPORT INFORMATION
  Report Type: Spontaneous
  Country: BR (occurrence: BR)
  Receive Date: 20210507
  Receipt Date: 20210507
  Transmission Date: 20210717
  Serious: Yes (Death, Hospitalization, Other)
  Sender: FDA-Public Use
  Company Number: BR-AMGEN-BRASP2021069611

PATIENT
  Age: 9 Year
  Sex: Male

DRUGS (1)
  1. FILGRASTIM [Suspect]
     Active Substance: FILGRASTIM
     Indication: NEUTROPENIA
     Route: 065

REACTIONS (8)
  - Gastroenteritis [Unknown]
  - Off label use [Unknown]
  - Inflammatory bowel disease [Unknown]
  - Sepsis [Fatal]
  - Osteoporosis [Unknown]
  - Malnutrition [Unknown]
  - Cataract [Unknown]
  - Treatment noncompliance [Unknown]
